FAERS Safety Report 13554164 (Version 2)
Quarter: 2017Q2

REPORT INFORMATION
  Report Type: Spontaneous
  Country: US (occurrence: US)
  Receive Date: 20170517
  Receipt Date: 20170616
  Transmission Date: 20170830
  Serious: Yes (Other)
  Sender: FDA-Public Use
  Company Number: US-WEST-WARD PHARMACEUTICALS CORP.-US-H14001-17-01535

PATIENT
  Age: 0 Year
  Sex: Female
  Weight: 4.99 kg

DRUGS (4)
  1. AMOXICILLIN AND CLAVULANATE POTASSIUM [Suspect]
     Active Substance: AMOXICILLIN\CLAVULANATE POTASSIUM
     Indication: EAR INFECTION
     Route: 048
     Dates: start: 20170506
  2. CORN SOURCED INGREDIENT [Suspect]
     Active Substance: CORN
     Indication: EAR INFECTION
     Route: 065
     Dates: start: 20170506
  3. SUCROSE [Suspect]
     Active Substance: SUCROSE
     Indication: EAR INFECTION
     Route: 065
     Dates: start: 20170506
  4. ZANTAC [Concomitant]
     Active Substance: RANITIDINE HYDROCHLORIDE
     Indication: PRODUCT USED FOR UNKNOWN INDICATION
     Route: 065

REACTIONS (7)
  - Condition aggravated [Recovering/Resolving]
  - Increased upper airway secretion [Recovering/Resolving]
  - Cough [Recovering/Resolving]
  - Haematochezia [Recovering/Resolving]
  - Mucous stools [Recovering/Resolving]
  - Reaction to drug excipients [Recovering/Resolving]
  - Viral upper respiratory tract infection [Recovering/Resolving]

NARRATIVE: CASE EVENT DATE: 2017
